FAERS Safety Report 12775927 (Version 2)
Quarter: 2016Q4

REPORT INFORMATION
  Report Type: Spontaneous
  Country: DK (occurrence: DK)
  Receive Date: 20160923
  Receipt Date: 20161205
  Transmission Date: 20170207
  Serious: Yes (Hospitalization)
  Sender: FDA-Public Use
  Company Number: PHHY2014DK030076

PATIENT
  Age: 50 Year
  Sex: Female
  Weight: 60 kg

DRUGS (6)
  1. OXAPAX [Suspect]
     Active Substance: OXAZEPAM
     Dosage: STYRKE: 15 MG.
     Route: 048
  2. ALOPAM [Suspect]
     Active Substance: OXAZEPAM
     Dosage: STYRKE: 15 MG.DOSIS PR D?GN VAR GENNEMSNITLIG P? 8 TABLETTER AF 15 MG.
     Route: 048
  3. LITIUMKARBONAT [Concomitant]
     Active Substance: LITHIUM CARBONATE
     Indication: BIPOLAR I DISORDER
     Dosage: 1 DF, QD
     Route: 048
     Dates: start: 20010101, end: 2015
  4. ELTROXIN [Concomitant]
     Active Substance: LEVOTHYROXINE
     Indication: HYPOTHYROIDISM
     Dosage: STYKRE: 50 MIKROGRAM. DOSIS: SE NARRATIV.
     Route: 048
     Dates: start: 2008, end: 20160318
  5. ALOPAM [Suspect]
     Active Substance: OXAZEPAM
     Indication: STRESS
     Dosage: 15 MG, UNK
     Route: 048
     Dates: start: 1995
  6. OXAPAX [Suspect]
     Active Substance: OXAZEPAM
     Indication: STRESS
     Dosage: 15 MG, TID
     Route: 048
     Dates: start: 1995

REACTIONS (4)
  - Off label use [Recovered/Resolved]
  - Disturbance in attention [Recovering/Resolving]
  - Drug dependence [Recovered/Resolved]
  - Drug withdrawal syndrome [Recovered/Resolved]

NARRATIVE: CASE EVENT DATE: 200610
